FAERS Safety Report 6527772-4 (Version None)
Quarter: 2010Q1

REPORT INFORMATION
  Report Type: 
  Country: None (occurrence: None)
  Receive Date: 20100106
  Receipt Date: 20091227
  Transmission Date: 20100710
  Serious: Yes (Hospitalization)
  Sender: FDA-Public Use
  Company Number: IT-ALLERGAN-0917709US

PATIENT
  Age: 5 Year
  Sex: Male

DRUGS (1)
  1. ATROPINA LUX 0.5% [Suspect]
     Indication: FUNDOSCOPY
     Dosage: 3 GTT, UNK
     Route: 047
     Dates: start: 20091002, end: 20091004

REACTIONS (2)
  - DRY MOUTH [None]
  - RASH [None]
